FAERS Safety Report 7108330-X (Version None)
Quarter: 2010Q4

REPORT INFORMATION
  Report Type: 
  Country: None (occurrence: None)
  Receive Date: 20101117
  Receipt Date: 20101104
  Transmission Date: 20110411
  Serious: Yes (Other)
  Sender: FDA-Public Use
  Company Number: PHHY2010BR74698

PATIENT
  Sex: Female

DRUGS (5)
  1. EXELON [Suspect]
     Indication: DEMENTIA ALZHEIMER'S TYPE
     Dosage: 9 MG/5CM2
     Route: 062
  2. EXELON [Suspect]
     Dosage: 18 MG/ 10CM2
     Route: 062
  3. EXELON [Suspect]
     Dosage: 27 MG/15CM2
     Route: 062
  4. EXELON [Suspect]
     Dosage: 27 MG/15CM2
     Route: 062
  5. ERANZ [Suspect]
     Dosage: 10 MG, QD

REACTIONS (2)
  - DEPRESSION [None]
  - MEMORY IMPAIRMENT [None]
